FAERS Safety Report 6625863-0 (Version None)
Quarter: 2010Q1

REPORT INFORMATION
  Report Type: 
  Country: None (occurrence: None)
  Receive Date: 20100310
  Receipt Date: 20100225
  Transmission Date: 20100710
  Serious: Yes (Hospitalization)
  Sender: FDA-Public Use
  Company Number: FI-AMGEN-US395367

PATIENT
  Sex: Male

DRUGS (4)
  1. ENBREL [Suspect]
     Indication: RHEUMATOID ARTHRITIS
     Dosage: 25 MG FREQUENCY UNKNOWN
     Route: 058
     Dates: start: 20090101, end: 20090901
  2. OXIKLORIN [Concomitant]
     Dosage: 100 MG FREQUENCY UNKNOWN
     Route: 048
  3. PREDNISONE [Concomitant]
     Dosage: 5 MG FREQUENCY UNKNOWN
     Route: 048
  4. AZAMUN [Concomitant]
     Dosage: 25 MG FREQUENCY UNKNOWN
     Route: 048

REACTIONS (1)
  - PNEUMOCYSTIS JIROVECI INFECTION [None]
